FAERS Safety Report 4750765-4 (Version None)
Quarter: 2005Q3

REPORT INFORMATION
  Report Type: 
  Country: None (occurrence: None)
  Receive Date: 20050823
  Receipt Date: 20050309
  Transmission Date: 20060218
  Serious: Yes (Hospitalization, Disabling)
  Sender: FDA-Public Use
  Company Number: US-MERCK-0503USA01907

PATIENT
  Age: 47 Year
  Sex: Male
  Weight: 107 kg

DRUGS (10)
  1. VIOXX [Suspect]
     Indication: ARTHRITIS
     Route: 048
     Dates: start: 20011231, end: 20020301
  2. TOPROL-XL [Concomitant]
     Route: 065
     Dates: start: 20020101
  3. LIPITOR [Concomitant]
     Indication: BLOOD CHOLESTEROL INCREASED
     Route: 065
     Dates: start: 20020101
  4. ADVIL [Concomitant]
     Indication: ARTHRITIS
     Route: 065
     Dates: start: 19850101
  5. ADVIL [Concomitant]
     Indication: PAIN
     Route: 065
     Dates: start: 19850101
  6. ALEVE [Concomitant]
     Indication: ARTHRITIS
     Route: 065
     Dates: start: 19850101
  7. ALEVE [Concomitant]
     Indication: PAIN
     Route: 065
     Dates: start: 19850101
  8. TYLENOL [Concomitant]
     Indication: ARTHRITIS
     Route: 065
     Dates: start: 19850101
  9. TYLENOL [Concomitant]
     Indication: PAIN
     Route: 065
     Dates: start: 19850101
  10. FOLGARD [Concomitant]
     Route: 065
     Dates: start: 20020101

REACTIONS (3)
  - HERPES ZOSTER [None]
  - MYOCARDIAL INFARCTION [None]
  - NON-HODGKIN'S LYMPHOMA [None]
